FAERS Safety Report 21392338 (Version 12)
Quarter: 2023Q1

REPORT INFORMATION
  Report Type: Spontaneous
  Country: US (occurrence: US)
  Receive Date: 20220929
  Receipt Date: 20230217
  Transmission Date: 20230418
  Serious: Yes (Death, Hospitalization)
  Sender: FDA-Public Use
  Company Number: US-KARYOPHARM-2022KPT001083

PATIENT

DRUGS (15)
  1. XPOVIO [Suspect]
     Active Substance: SELINEXOR
     Indication: Diffuse large B-cell lymphoma
     Dosage: 60 MG, 2X/WEEK
     Route: 048
     Dates: start: 20220908, end: 20221013
  2. XPOVIO [Suspect]
     Active Substance: SELINEXOR
     Dosage: 60 MG, 2X/WEEK
     Route: 048
     Dates: end: 202211
  3. XPOVIO [Suspect]
     Active Substance: SELINEXOR
     Dosage: 60 MG, 2X/WEEK
     Route: 048
     Dates: start: 202211
  4. XPOVIO [Suspect]
     Active Substance: SELINEXOR
     Dosage: 20 MG, 2X/WEEK
     Route: 048
     Dates: start: 2022
  5. XPOVIO [Suspect]
     Active Substance: SELINEXOR
     Dosage: 40 MG, 2X/WEEK
     Route: 048
     Dates: start: 20230105
  6. ELIQUIS [Concomitant]
     Active Substance: APIXABAN
  7. METOPROLOL SUCCINATE [Concomitant]
     Active Substance: METOPROLOL SUCCINATE
  8. ONDANSETRON [Concomitant]
     Active Substance: ONDANSETRON
  9. MIRALAX [Concomitant]
     Active Substance: POLYETHYLENE GLYCOL 3350
  10. OXYCODONE [Concomitant]
     Active Substance: OXYCODONE
  11. PENICILLIN V POTASSIUM [Concomitant]
     Active Substance: PENICILLIN V POTASSIUM
  12. PRAVASTATIN [Concomitant]
     Active Substance: PRAVASTATIN
  13. TAMSULOSIN [Concomitant]
     Active Substance: TAMSULOSIN
  14. DEXAMETHASONE [Concomitant]
     Active Substance: DEXAMETHASONE
  15. DIPHENHYDRAMINE [Concomitant]
     Active Substance: DIPHENHYDRAMINE

REACTIONS (23)
  - Death [Fatal]
  - Diverticulitis [Unknown]
  - Urinary tract infection [Not Recovered/Not Resolved]
  - Confusional state [Unknown]
  - Disturbance in attention [Unknown]
  - Ageusia [Not Recovered/Not Resolved]
  - Abdominal discomfort [Not Recovered/Not Resolved]
  - Tension [Unknown]
  - Insomnia [Not Recovered/Not Resolved]
  - White blood cell count decreased [Unknown]
  - Diffuse large B-cell lymphoma [Unknown]
  - Drug intolerance [Unknown]
  - Myalgia [Unknown]
  - Hypersomnia [Unknown]
  - Gait disturbance [Unknown]
  - Speech disorder [Unknown]
  - Nausea [Unknown]
  - Vision blurred [Unknown]
  - Fatigue [Not Recovered/Not Resolved]
  - Dizziness [Not Recovered/Not Resolved]
  - Dehydration [Unknown]
  - Decreased appetite [Not Recovered/Not Resolved]
  - Asthenia [Unknown]

NARRATIVE: CASE EVENT DATE: 20220101
